FAERS Safety Report 4887497-8 (Version None)
Quarter: 2006Q1

REPORT INFORMATION
  Report Type: 
  Country: None (occurrence: None)
  Receive Date: 20060123
  Receipt Date: 20051219
  Transmission Date: 20060701
  Serious: Yes (Life-Threatening, Hospitalization)
  Sender: FDA-Public Use
  Company Number: 2005GB02463

PATIENT
  Age: 60 Year
  Sex: Male

DRUGS (3)
  1. LISINOPRIL [Suspect]
     Route: 048
  2. ASPIRIN [Suspect]
     Route: 065
  3. RANITIDINE [Suspect]
     Route: 048

REACTIONS (16)
  - AGITATION [None]
  - ANAPHYLACTIC REACTION [None]
  - ANGIONEUROTIC OEDEMA [None]
  - BLOOD PRESSURE INCREASED [None]
  - CYANOSIS [None]
  - DYSPNOEA [None]
  - HAEMORRHAGE [None]
  - LARYNGEAL OEDEMA [None]
  - MYOCARDIAL INFARCTION [None]
  - OXYGEN SATURATION DECREASED [None]
  - PNEUMOPERICARDIUM [None]
  - PNEUMOTHORAX [None]
  - RESPIRATORY DISTRESS [None]
  - STRIDOR [None]
  - TACHYCARDIA [None]
  - WHEEZING [None]
